FAERS Safety Report 10588260 (Version 2)
Quarter: 2014Q4

REPORT INFORMATION
  Report Type: Report from Study
  Country: AR (occurrence: AR)
  Receive Date: 20141117
  Receipt Date: 20141122
  Transmission Date: 20150529
  Serious: Yes (Death)
  Sender: FDA-Public Use
  Company Number: AR-ASTRAZENECA-2014SE85808

PATIENT
  Age: 33284 Day
  Sex: Female
  Weight: 74 kg

DRUGS (6)
  1. CIPROFLOXACIN. [Suspect]
     Active Substance: CIPROFLOXACIN
     Dosage: TOTAL DAILY DOSE 400 MG BY EXTRAVASCULAR ROUTE
     Dates: start: 20140710, end: 20140715
  2. CLINDAMICINA COMBINO PHARM [Suspect]
     Active Substance: CLINDAMYCIN PHOSPHATE
     Dosage: TOTAL DAILY DOSE 1800 MG BY EXTRAVASCULAR ROUTE
     Dates: start: 20140710, end: 20140715
  3. HEPARIN [Suspect]
     Active Substance: HEPARIN SODIUM
     Dosage: TOTAL DAILY DOSE 0.8 CC BY EXTRAVASCULAR ROUTE
     Dates: start: 20140710, end: 20140712
  4. AZD6140 CODE NOT BROKEN [Suspect]
     Active Substance: TICAGRELOR
     Indication: PERIPHERAL ARTERIAL OCCLUSIVE DISEASE
     Route: 048
     Dates: start: 20140213, end: 20140426
  5. OMEPRAZOLE. [Suspect]
     Active Substance: OMEPRAZOLE
     Dosage: TOTAL DAILY DOSE 20 MG
     Route: 048
     Dates: start: 20140710, end: 20140715
  6. MORPHIN (NON-AZ PRODUCT) [Suspect]
     Active Substance: MORPHINE
     Dosage: EXTRAVASCULAR ROUTE
     Dates: start: 20140710, end: 20140715

REACTIONS (1)
  - Cardiac death [Fatal]

NARRATIVE: CASE EVENT DATE: 20140715
